FAERS Safety Report 24717469 (Version 1)
Quarter: 2024Q4

REPORT INFORMATION
  Report Type: Spontaneous
  Country: US (occurrence: US)
  Receive Date: 20241210
  Receipt Date: 20241210
  Transmission Date: 20250115
  Serious: No
  Sender: BAUSCH AND LOMB
  Company Number: US-BAUSCH-BL-2024-017669

PATIENT
  Age: 38 Year
  Sex: Male
  Weight: 63.56 kg

DRUGS (2)
  1. ATIVAN [Suspect]
     Active Substance: LORAZEPAM
     Indication: Partial seizures
     Dosage: 1-2 MG AS NEEDED
     Route: 048
     Dates: end: 202402
  2. ATIVAN [Suspect]
     Active Substance: LORAZEPAM
     Indication: Seizure

REACTIONS (3)
  - Head banging [Unknown]
  - Insurance issue [Unknown]
  - Therapy interrupted [Unknown]

NARRATIVE: CASE EVENT DATE: 20240101
